FAERS Safety Report 6250883-8 (Version None)
Quarter: 2009Q2

REPORT INFORMATION
  Report Type: 
  Country: None (occurrence: None)
  Receive Date: 20090630
  Receipt Date: 20090422
  Transmission Date: 20091009
  Serious: No
  Sender: FDA-Public Use
  Company Number: US-BAUSCH-2009BL001868

PATIENT
  Age: 37 Year
  Sex: Female

DRUGS (2)
  1. ALAWAY [Suspect]
     Route: 047
     Dates: start: 20090422, end: 20090422
  2. PATANOL [Concomitant]
     Indication: EYE ALLERGY
     Route: 047

REACTIONS (2)
  - DRUG LABEL CONFUSION [None]
  - EYE PAIN [None]
